FAERS Safety Report 13240894 (Version 1)
Quarter: 2017Q1

REPORT INFORMATION
  Report Type: Spontaneous
  Country: US (occurrence: US)
  Receive Date: 20170216
  Receipt Date: 20170216
  Transmission Date: 20170428
  Serious: No
  Sender: FDA-Public Use
  Company Number: US-RELYPSA-RLY2016004154

PATIENT
  Age: 70 Year
  Sex: Male

DRUGS (13)
  1. INSULIN [Concomitant]
     Active Substance: INSULIN NOS
  2. ALLOPURINOL. [Concomitant]
     Active Substance: ALLOPURINOL
  3. VELTASSA [Suspect]
     Active Substance: PATIROMER
     Indication: HYPERKALAEMIA
     Dosage: ONCE DAILY
     Route: 048
     Dates: start: 201611, end: 20161126
  4. FISH OIL [Concomitant]
     Active Substance: FISH OIL
  5. VELTASSA [Suspect]
     Active Substance: PATIROMER
     Dosage: UNKNOWN
     Route: 065
     Dates: start: 20161201
  6. VITAMIN B [Concomitant]
     Active Substance: VITAMIN B
  7. FUROSEMIDE. [Concomitant]
     Active Substance: FUROSEMIDE
     Dosage: EVERY OTHER DAY
  8. WARFARIN [Concomitant]
     Active Substance: WARFARIN
     Dosage: ONCE A DAY
  9. SIMVASTATIN. [Concomitant]
     Active Substance: SIMVASTATIN
  10. COLCHICINE. [Concomitant]
     Active Substance: COLCHICINE
     Dosage: EVERY OTHER DAY
  11. REPAGLINIDE. [Concomitant]
     Active Substance: REPAGLINIDE
     Dosage: TID
  12. LOSARTAN. [Concomitant]
     Active Substance: LOSARTAN
  13. BABY ASPIRIN [Concomitant]
     Active Substance: ASPIRIN

REACTIONS (3)
  - Weight increased [Recovered/Resolved]
  - Blood glucose increased [Recovered/Resolved]
  - Drug administration error [Recovered/Resolved]

NARRATIVE: CASE EVENT DATE: 201611
